FAERS Safety Report 9214978 (Version 3)
Quarter: 2013Q2

REPORT INFORMATION
  Report Type: Report from Study
  Country: FI (occurrence: FI)
  Receive Date: 20130405
  Receipt Date: 20130503
  Transmission Date: 20140414
  Serious: Yes (Hospitalization)
  Sender: FDA-Public Use
  Company Number: FI-PFIZER INC-2013088526

PATIENT
  Age: 31 Year
  Sex: Male
  Weight: 78 kg

DRUGS (10)
  1. FLUDARABINE [Suspect]
     Indication: ACUTE LYMPHOCYTIC LEUKAEMIA
     Dosage: 60 MG, CYCLIC (DAYS 2-6, 4 WEEK CYCLE)
     Route: 042
     Dates: start: 20130124, end: 20130310
  2. CYTARABINE [Suspect]
     Indication: ACUTE LYMPHOCYTIC LEUKAEMIA
     Dosage: 4 G, CYCLIC (DAYS 1-6, 4 WEEK CYCLE)
     Route: 042
     Dates: start: 20130123, end: 20130310
  3. PEGFILGRASTIM [Suspect]
     Indication: NEUTROPENIA
     Dosage: 6000 UG, CYCLIC (ONCE AT EVERY CYCLE DAY 13)
     Route: 058
     Dates: start: 20130204, end: 20130312
  4. FLUCONAZOL SANDOZ [Concomitant]
     Indication: INFECTION PROPHYLAXIS
     Dosage: 400 MG, 1X/DAY
     Route: 048
     Dates: start: 20130312, end: 20130316
  5. VALACICLOVIR BLUEFISH [Concomitant]
     Indication: INFECTION PROPHYLAXIS
     Dosage: 500 MG, 2X/DAY
     Route: 048
     Dates: start: 20130213
  6. CAPHOSOL [Concomitant]
     Indication: PROPHYLAXIS
     Dosage: 10 ML, 4X/DAY
     Route: 048
     Dates: start: 20130307, end: 20130312
  7. ONDANSETRON [Concomitant]
     Indication: PROPHYLAXIS OF NAUSEA AND VOMITING
     Dosage: 8 MG, 2X/DAY
     Route: 048
     Dates: start: 20130305, end: 20130312
  8. TRAMAL [Concomitant]
     Indication: PROCEDURAL PAIN
     Dosage: 50 MG, AS NEEDED
     Route: 048
     Dates: start: 20130305, end: 20130306
  9. DIAPAM [Concomitant]
     Indication: PREMEDICATION
     Dosage: 10 MG, SINGLE
     Route: 048
     Dates: start: 20130305, end: 20130305
  10. ZOPINOX [Concomitant]
     Indication: SLEEP DISORDER
     Dosage: 7.5 MG, AS NEEDED
     Route: 048
     Dates: start: 20130305, end: 20130308

REACTIONS (2)
  - Febrile neutropenia [Recovered/Resolved]
  - Escherichia sepsis [Recovered/Resolved]
